FAERS Safety Report 18682362 (Version 2)
Quarter: 2020Q4

REPORT INFORMATION
  Report Type: Spontaneous
  Country: US (occurrence: US)
  Receive Date: 20201230
  Receipt Date: 20201231
  Transmission Date: 20210114
  Serious: Yes (Death, Other)
  Sender: FDA-Public Use
  Company Number: US-ABBVIE-20K-163-3708453-00

PATIENT
  Age: 50 Year
  Sex: Female

DRUGS (1)
  1. VENETOCLAX. [Suspect]
     Active Substance: VENETOCLAX
     Indication: ACUTE MYELOID LEUKAEMIA
     Route: 048
     Dates: start: 201808

REACTIONS (16)
  - Leukaemia [Fatal]
  - Asphyxia [Unknown]
  - Dry mouth [Unknown]
  - Hyperventilation [Unknown]
  - Acute myeloid leukaemia [Unknown]
  - Stupor [Unknown]
  - Asthenia [Unknown]
  - Stomatitis [Unknown]
  - Platelet count decreased [Unknown]
  - Hallucination, auditory [Unknown]
  - Dyspnoea [Unknown]
  - Multiple organ dysfunction syndrome [Fatal]
  - Dry skin [Unknown]
  - Internal haemorrhage [Unknown]
  - Skin fissures [Unknown]
  - Cerebral disorder [Unknown]

NARRATIVE: CASE EVENT DATE: 201808
